FAERS Safety Report 4965834-3 (Version None)
Quarter: 2006Q2

REPORT INFORMATION
  Report Type: 
  Country: None (occurrence: None)
  Receive Date: 20060406
  Receipt Date: 20060406
  Transmission Date: 20061013
  Serious: Yes (Life-Threatening, Hospitalization)
  Sender: FDA-Public Use
  Company Number: None

PATIENT
  Age: 45 Year
  Sex: Female
  Weight: 46 kg

DRUGS (3)
  1. METHIMAZOLE [Suspect]
     Indication: HYPERTHYROIDISM
     Dosage: PO
     Route: 048
     Dates: start: 20050801, end: 20051117
  2. COUMADIN [Concomitant]
  3. METOPROLOL TARTRATE [Concomitant]

REACTIONS (7)
  - ABDOMINAL PAIN [None]
  - INTESTINAL DILATATION [None]
  - LUNG INFILTRATION [None]
  - NEUTROPENIA [None]
  - PLEURAL EFFUSION [None]
  - PYREXIA [None]
  - WHITE BLOOD CELL COUNT DECREASED [None]
